FAERS Safety Report 25217109 (Version 6)
Quarter: 2025Q3

REPORT INFORMATION
  Report Type: Spontaneous
  Country: CA (occurrence: CA)
  Receive Date: 20250419
  Receipt Date: 20250719
  Transmission Date: 20251021
  Serious: Yes (Other)
  Sender: CELLTRION
  Company Number: CA-PFIZER INC-202400243838

PATIENT

DRUGS (15)
  1. INFLECTRA [Suspect]
     Active Substance: INFLIXIMAB-DYYB
     Indication: Crohn^s disease
     Route: 042
     Dates: start: 20240709
  2. INFLECTRA [Suspect]
     Active Substance: INFLIXIMAB-DYYB
     Route: 042
     Dates: start: 20240724
  3. INFLECTRA [Suspect]
     Active Substance: INFLIXIMAB-DYYB
     Route: 042
     Dates: start: 20240823
  4. INFLECTRA [Suspect]
     Active Substance: INFLIXIMAB-DYYB
     Route: 042
     Dates: start: 20241017
  5. INFLECTRA [Suspect]
     Active Substance: INFLIXIMAB-DYYB
     Route: 042
     Dates: start: 20241219
  6. INFLECTRA [Suspect]
     Active Substance: INFLIXIMAB-DYYB
     Route: 042
     Dates: start: 20250213
  7. INFLECTRA [Suspect]
     Active Substance: INFLIXIMAB-DYYB
     Route: 042
     Dates: start: 20250416
  8. INFLECTRA [Suspect]
     Active Substance: INFLIXIMAB-DYYB
     Route: 042
     Dates: start: 20250612
  9. ASPIRIN [Concomitant]
     Active Substance: ASPIRIN
  10. CALCIUM [Concomitant]
     Active Substance: CALCIUM
  11. IRON [Concomitant]
     Active Substance: IRON
  12. MAGNESIUM [Concomitant]
     Active Substance: MAGNESIUM
  13. VITAMIN C [Concomitant]
     Active Substance: ASCORBIC ACID
  14. VIT D [VITAMIN D NOS] [Concomitant]
  15. ZINC [Concomitant]
     Active Substance: ZINC

REACTIONS (9)
  - Diverticulitis [Not Recovered/Not Resolved]
  - Rheumatoid arthritis [Recovering/Resolving]
  - Drug level decreased [Unknown]
  - Condition aggravated [Recovering/Resolving]
  - Sinusitis [Recovered/Resolved]
  - Pruritus [Unknown]
  - Hypoaesthesia [Unknown]
  - Skin disorder [Unknown]
  - Inappropriate schedule of product administration [Unknown]

NARRATIVE: CASE EVENT DATE: 20240823
